FAERS Safety Report 7526798-1 (Version None)
Quarter: 2011Q2

REPORT INFORMATION
  Report Type: 
  Country: None (occurrence: None)
  Receive Date: 20110606
  Receipt Date: 20110509
  Transmission Date: 20111010
  Serious: Yes (Other)
  Sender: FDA-Public Use
  Company Number: BR-BAYER-2011-040448

PATIENT
  Age: 34 Year
  Sex: Female
  Weight: 65 kg

DRUGS (1)
  1. NAPROSYN [Suspect]
     Indication: ENDODONTIC PROCEDURE
     Dosage: 1 DF, BID
     Route: 048
     Dates: start: 20110508, end: 20110508

REACTIONS (5)
  - ABDOMINAL PAIN [None]
  - DIARRHOEA [None]
  - HAEMATOCHEZIA [None]
  - CHILLS [None]
  - NAUSEA [None]
